FAERS Safety Report 4995816-7 (Version None)
Quarter: 2006Q2

REPORT INFORMATION
  Report Type: 
  Country: None (occurrence: None)
  Receive Date: 20060504
  Receipt Date: 20060421
  Transmission Date: 20061013
  Serious: Yes (Hospitalization)
  Sender: FDA-Public Use
  Company Number: S06-DEN-01310-01

PATIENT
  Age: 61 Year
  Sex: Female

DRUGS (3)
  1. ESCITALOPRAM OXALATE [Suspect]
     Indication: DEPRESSION
     Dosage: 10  MG QD PO
     Route: 048
     Dates: start: 20060101, end: 20060309
  2. SALURES-K [Concomitant]
  3. AMLODIPINE [Concomitant]

REACTIONS (3)
  - BLOOD POTASSIUM DECREASED [None]
  - CONVULSION [None]
  - HYPONATRAEMIA [None]
